FAERS Safety Report 11744071 (Version 2)
Quarter: 2016Q1

REPORT INFORMATION
  Report Type: Spontaneous
  Country: US (occurrence: US)
  Receive Date: 20151116
  Receipt Date: 20160128
  Transmission Date: 20160525
  Serious: Yes (Other)
  Sender: FDA-Public Use
  Company Number: PHEH2015US023515

PATIENT
  Age: 49 Year
  Sex: Female
  Weight: 71.67 kg

DRUGS (7)
  1. VENLAFAXINE HCL [Concomitant]
     Active Substance: VENLAFAXINE HYDROCHLORIDE
     Indication: NEURALGIA
  2. TRAZODONE HYDROCHLORIDE. [Concomitant]
     Active Substance: TRAZODONE HYDROCHLORIDE
     Indication: AFFECTIVE DISORDER
  3. GILENYA [Suspect]
     Active Substance: FINGOLIMOD HYDROCHLORIDE
     Indication: RELAPSING-REMITTING MULTIPLE SCLEROSIS
     Dosage: 0.5 MG, QD
     Route: 048
     Dates: start: 20150501, end: 20150826
  4. DOCUSATE SODIUM. [Concomitant]
     Active Substance: DOCUSATE SODIUM
     Indication: PRODUCT USED FOR UNKNOWN INDICATION
     Dosage: UNK UNK, QOD (RTL ENEMA 1 CONTENT INTO RECTUM AS NEEDED)
     Route: 054
  5. GILENYA [Suspect]
     Active Substance: FINGOLIMOD HYDROCHLORIDE
     Dosage: 0.5 MG, QD
     Route: 048
     Dates: start: 20151010, end: 20151110
  6. VENLAFAXINE HCL [Concomitant]
     Active Substance: VENLAFAXINE HYDROCHLORIDE
     Indication: AFFECTIVE DISORDER
     Dosage: 100 MG ONE TAB BID AND 37.5 MG MG EXTENDED RELEASE TABLET 1 QD
     Route: 048
  7. TRAZODONE HYDROCHLORIDE. [Concomitant]
     Active Substance: TRAZODONE HYDROCHLORIDE
     Indication: SLEEP DISORDER
     Dosage: 1 DF, QHS
     Route: 048

REACTIONS (19)
  - Central nervous system lesion [Unknown]
  - Gait disturbance [Unknown]
  - Chest pain [Recovered/Resolved]
  - Confusional state [Unknown]
  - Neck pain [Unknown]
  - Back pain [Unknown]
  - Cardiac disorder [Unknown]
  - Clumsiness [Unknown]
  - Nervous system disorder [Not Recovered/Not Resolved]
  - Muscular weakness [Unknown]
  - Limb discomfort [Unknown]
  - Depression [Unknown]
  - Fatigue [Unknown]
  - Blood pressure increased [Unknown]
  - Stress [Unknown]
  - Balance disorder [Unknown]
  - Anxiety [Unknown]
  - Bradycardia [Unknown]
  - Pain [Unknown]

NARRATIVE: CASE EVENT DATE: 20150501
